FAERS Safety Report 5610898-7 (Version None)
Quarter: 2008Q1

REPORT INFORMATION
  Report Type: 
  Country: None (occurrence: None)
  Receive Date: 20080201
  Receipt Date: 20080123
  Transmission Date: 20080703
  Serious: Yes (Hospitalization)
  Sender: FDA-Public Use
  Company Number: JP-AVENTIS-200810254JP

PATIENT
  Age: 53 Year
  Sex: Female

DRUGS (2)
  1. LEFLUNOMIDE [Suspect]
     Indication: RHEUMATOID ARTHRITIS
     Route: 048
     Dates: start: 20040701, end: 20050101
  2. LEFLUNOMIDE [Suspect]
     Route: 048
     Dates: start: 20050101, end: 20070601

REACTIONS (1)
  - MYOSITIS [None]
